FAERS Safety Report 23856293 (Version 1)
Quarter: 2024Q2

REPORT INFORMATION
  Report Type: Report from Study
  Country: US (occurrence: None)
  Receive Date: 20240515
  Receipt Date: 20240515
  Transmission Date: 20240716
  Serious: Yes (Other)
  Sender: FDA-Public Use
  Company Number: US-ADAMAS Pharma-ADM202404-001271

PATIENT
  Age: 80 Year
  Sex: Female

DRUGS (5)
  1. GOCOVRI [Suspect]
     Active Substance: AMANTADINE
     Indication: Dyskinesia
     Route: 048
     Dates: start: 20240404
  2. GOCOVRI [Suspect]
     Active Substance: AMANTADINE
     Indication: Parkinson^s disease
     Route: 048
     Dates: start: 202404
  3. GOCOVRI [Suspect]
     Active Substance: AMANTADINE
     Dosage: (137 MG)
     Route: 048
     Dates: start: 20240418
  4. OMEGA 3 [Concomitant]
     Active Substance: CAPSAICIN
     Dosage: 1200MG
  5. VITAMIN D [Concomitant]
     Active Substance: VITAMIN D NOS
     Dosage: 400UNIT

REACTIONS (4)
  - Loss of consciousness [Unknown]
  - Seizure [Unknown]
  - Dizziness [Not Recovered/Not Resolved]
  - Fall [Unknown]

NARRATIVE: CASE EVENT DATE: 20240415
